FAERS Safety Report 18063102 (Version 2)
Quarter: 2020Q3

REPORT INFORMATION
  Report Type: Report from Study
  Country: NZ (occurrence: NZ)
  Receive Date: 20200723
  Receipt Date: 20200818
  Transmission Date: 20201103
  Serious: Yes (Other)
  Sender: FDA-Public Use
  Company Number: NVSC2020NZ174941

PATIENT
  Age: 73 Year
  Sex: Female

DRUGS (1)
  1. COSENTYX [Suspect]
     Active Substance: SECUKINUMAB
     Indication: PSORIASIS
     Dosage: 300 MG, QW
     Route: 058
     Dates: start: 20200619

REACTIONS (5)
  - Pruritus [Not Recovered/Not Resolved]
  - Wound infection [Unknown]
  - Psoriasis [Unknown]
  - Skin mass [Unknown]
  - Pain [Unknown]

NARRATIVE: CASE EVENT DATE: 202006
